FAERS Safety Report 16793769 (Version 1)
Quarter: 2019Q3

REPORT INFORMATION
  Report Type: Report from Study
  Country: CA (occurrence: CA)
  Receive Date: 20190911
  Receipt Date: 20190911
  Transmission Date: 20191005
  Serious: Yes (Hospitalization, Other)
  Sender: FDA-Public Use
  Company Number: CA-ROCHE-2404324

PATIENT

DRUGS (10)
  1. AMOXICILLIN. [Suspect]
     Active Substance: AMOXICILLIN
     Indication: IMMUNE THROMBOCYTOPENIC PURPURA
     Route: 065
  2. METHOTREXATE. [Suspect]
     Active Substance: METHOTREXATE
     Indication: IMMUNE THROMBOCYTOPENIC PURPURA
     Route: 065
  3. CLARITHROMYCIN. [Suspect]
     Active Substance: CLARITHROMYCIN
     Indication: IMMUNE THROMBOCYTOPENIC PURPURA
     Route: 065
  4. RHO(D) IMMUNE GLOBULIN [Suspect]
     Active Substance: HUMAN RHO(D) IMMUNE GLOBULIN
     Indication: IMMUNE THROMBOCYTOPENIC PURPURA
     Route: 065
  5. RITUXIMAB. [Suspect]
     Active Substance: RITUXIMAB
     Indication: IMMUNE THROMBOCYTOPENIC PURPURA
     Route: 065
  6. IMMUNOGLOBULIN HUMAN NORMAL [Suspect]
     Active Substance: HUMAN IMMUNOGLOBULIN G
     Indication: IMMUNE THROMBOCYTOPENIC PURPURA
     Route: 042
  7. DANAZOL. [Suspect]
     Active Substance: DANAZOL
     Indication: IMMUNE THROMBOCYTOPENIC PURPURA
     Route: 065
  8. DAPSONE. [Suspect]
     Active Substance: DAPSONE
     Indication: IMMUNE THROMBOCYTOPENIC PURPURA
     Route: 065
  9. LANSOPRAZOLE. [Suspect]
     Active Substance: LANSOPRAZOLE
     Indication: IMMUNE THROMBOCYTOPENIC PURPURA
     Route: 065
  10. CYCLOSPORINE. [Suspect]
     Active Substance: CYCLOSPORINE
     Indication: IMMUNE THROMBOCYTOPENIC PURPURA
     Route: 065

REACTIONS (7)
  - Pyrexia [Unknown]
  - Chills [Unknown]
  - Chest pain [Unknown]
  - Headache [Unknown]
  - Fluid overload [Unknown]
  - Troponin increased [Unknown]
  - Meningitis aseptic [Unknown]
